FAERS Safety Report 9681941 (Version 1)
Quarter: 2013Q4

REPORT INFORMATION
  Report Type: Spontaneous
  Country: US (occurrence: US)
  Receive Date: 20131111
  Receipt Date: 20131111
  Transmission Date: 20140711
  Serious: Yes (Hospitalization)
  Sender: FDA-Public Use
  Company Number: US-FRI-1000050952

PATIENT
  Sex: Female

DRUGS (8)
  1. LINZESS [Suspect]
  2. HUMIRA [Suspect]
     Route: 058
  3. TYLENOL WITH CODEINE [Suspect]
     Dosage: 1 PILL
  4. APRISO [Suspect]
  5. DIGOXIN [Concomitant]
     Route: 048
  6. PROBIOTICS [Concomitant]
  7. METOPROLOL [Concomitant]
  8. TYLENOL [Concomitant]

REACTIONS (10)
  - Intestinal obstruction [Unknown]
  - Intestinal stenosis [Unknown]
  - Diverticulitis [Unknown]
  - Inflammation [Unknown]
  - Abnormal dreams [Unknown]
  - Lethargy [Unknown]
  - Constipation [Unknown]
  - Diarrhoea [Unknown]
  - Frequent bowel movements [Unknown]
  - Drug ineffective [Unknown]
